FAERS Safety Report 13534344 (Version 1)
Quarter: 2017Q2

REPORT INFORMATION
  Report Type: Spontaneous
  Country: US (occurrence: US)
  Receive Date: 20170510
  Receipt Date: 20170510
  Transmission Date: 20170830
  Serious: No
  Sender: FDA-Public Use
  Company Number: None

PATIENT
  Age: 26 Year
  Sex: Male
  Weight: 82.6 kg

DRUGS (2)
  1. GENERIC CONCERTA CR 54MG [Suspect]
     Active Substance: METHYLPHENIDATE HYDROCHLORIDE
     Indication: ATTENTION DEFICIT/HYPERACTIVITY DISORDER
     Dosage: REPORTED THROUGH PT SIDE EFFECT OF DIARRHEA, INEFFECTIVE.
  2. GENERIC CONCERTA CR 54MG [Suspect]
     Active Substance: METHYLPHENIDATE HYDROCHLORIDE
     Indication: DIARRHOEA
     Dosage: REPORTED THROUGH PT SIDE EFFECT OF DIARRHEA, INEFFECTIVE.

REACTIONS (3)
  - Product substitution issue [None]
  - Drug ineffective [None]
  - Diarrhoea [None]
